FAERS Safety Report 7402857-9 (Version None)
Quarter: 2011Q2

REPORT INFORMATION
  Report Type: 
  Country: None (occurrence: None)
  Receive Date: 20110408
  Receipt Date: 20110201
  Transmission Date: 20111010
  Serious: Yes (Hospitalization, Other)
  Sender: FDA-Public Use
  Company Number: IE-ABBOTT-11P-229-0702112-00

PATIENT
  Sex: Female

DRUGS (10)
  1. LYRICA [Concomitant]
     Indication: PRODUCT USED FOR UNKNOWN INDICATION
  2. NORTEM [Concomitant]
     Indication: PRODUCT USED FOR UNKNOWN INDICATION
  3. COVERSYL [Concomitant]
     Indication: PRODUCT USED FOR UNKNOWN INDICATION
  4. ASPIRIN [Concomitant]
     Indication: PRODUCT USED FOR UNKNOWN INDICATION
  5. NEXIUM [Concomitant]
     Indication: PRODUCT USED FOR UNKNOWN INDICATION
  6. HUMIRA [Suspect]
     Indication: RHEUMATOID ARTHRITIS
     Route: 058
     Dates: start: 20101209
  7. ZESTEIL [Concomitant]
     Indication: PRODUCT USED FOR UNKNOWN INDICATION
  8. CORDARONE [Concomitant]
     Indication: PRODUCT USED FOR UNKNOWN INDICATION
  9. COZAAR [Concomitant]
     Indication: PRODUCT USED FOR UNKNOWN INDICATION
  10. PREDNISOLONE [Concomitant]
     Indication: PRODUCT USED FOR UNKNOWN INDICATION

REACTIONS (5)
  - DEEP VEIN THROMBOSIS [None]
  - PNEUMONIA [None]
  - DECUBITUS ULCER [None]
  - FUNGAL SKIN INFECTION [None]
  - ARTHRALGIA [None]
